FAERS Safety Report 24258276 (Version 1)
Quarter: 2024Q3

REPORT INFORMATION
  Report Type: Spontaneous
  Country: US (occurrence: None)
  Receive Date: 20240826
  Receipt Date: 20240826
  Transmission Date: 20241017
  Serious: No
  Sender: Public
  Company Number: None

PATIENT
  Age: 30 Year
  Sex: Female
  Weight: 89.58 kg

DRUGS (1)
  1. QSYMIA [Suspect]
     Active Substance: PHENTERMINE HYDROCHLORIDE\TOPIRAMATE
     Dosage: OTHER QUANTITY : 7.5-46MG;?
     Dates: start: 20240708, end: 20240822

REACTIONS (2)
  - Pregnancy [None]
  - Maternal exposure during pregnancy [None]
